FAERS Safety Report 6760985-5 (Version None)
Quarter: 2010Q2

REPORT INFORMATION
  Report Type: 
  Country: None (occurrence: None)
  Receive Date: 20100608
  Receipt Date: 20100602
  Transmission Date: 20101027
  Serious: Yes (Hospitalization, Disabling, Other)
  Sender: FDA-Public Use
  Company Number: A0849247A

PATIENT
  Age: 50 Year
  Sex: Male

DRUGS (5)
  1. PROMACTA [Suspect]
     Indication: IDIOPATHIC THROMBOCYTOPENIC PURPURA
     Dosage: 25MG WEEKLY
     Route: 048
     Dates: start: 20090604, end: 20100225
  2. ALCOHOL [Concomitant]
  3. FLECAINIDE ACETATE [Concomitant]
  4. WINRHO SD [Concomitant]
  5. CORTICOSTEROIDS [Concomitant]
     Indication: IDIOPATHIC THROMBOCYTOPENIC PURPURA

REACTIONS (9)
  - ALCOHOL ABUSE [None]
  - ASCITES [None]
  - BLOOD BILIRUBIN INCREASED [None]
  - COAGULOPATHY [None]
  - DISEASE PROGRESSION [None]
  - HEPATIC CIRRHOSIS [None]
  - HEPATIC ENZYME INCREASED [None]
  - HEPATOTOXICITY [None]
  - HYPERBILIRUBINAEMIA [None]
